FAERS Safety Report 4649316-4 (Version None)
Quarter: 2005Q2

REPORT INFORMATION
  Report Type: 
  Country: None (occurrence: None)
  Receive Date: 20050429
  Receipt Date: 20050422
  Transmission Date: 20051028
  Serious: Yes (Hospitalization)
  Sender: FDA-Public Use
  Company Number: FR-MERCK-0504FRA00075

PATIENT
  Age: 68 Year
  Sex: Male

DRUGS (6)
  1. PRIMAXIN [Suspect]
     Indication: POSTOPERATIVE INFECTION
     Route: 042
     Dates: start: 20041217, end: 20041228
  2. METHYLPREDNISOLONE SODIUM SUCCINATE [Concomitant]
     Indication: LIVER TRANSPLANT
     Route: 051
     Dates: start: 20041129
  3. CIPROFLOXACIN HYDROCHLORIDE [Suspect]
     Indication: POSTOPERATIVE INFECTION
     Route: 042
     Dates: start: 20041217, end: 20041226
  4. FLUCONAZOLE [Concomitant]
     Route: 065
     Dates: start: 20041216
  5. LINEZOLID [Suspect]
     Indication: POSTOPERATIVE INFECTION
     Route: 048
     Dates: start: 20041217, end: 20050103
  6. TACROLIMUS [Suspect]
     Indication: LIVER TRANSPLANT
     Route: 048
     Dates: start: 20041129, end: 20041228

REACTIONS (1)
  - THROMBOTIC THROMBOCYTOPENIC PURPURA [None]
